FAERS Safety Report 17394432 (Version 1)
Quarter: 2020Q1

REPORT INFORMATION
  Report Type: Report from Study
  Country: None (occurrence: DE)
  Receive Date: 20200210
  Receipt Date: 20200210
  Transmission Date: 20200409
  Serious: Yes (Hospitalization)
  Sender: FDA-Public Use
  Company Number: DE-ABBVIE-20K-062-3264271-00

PATIENT
  Age: 68 Year
  Sex: Female

DRUGS (10)
  1. MTX [Concomitant]
     Active Substance: METHOTREXATE SODIUM
     Indication: PRODUCT USED FOR UNKNOWN INDICATION
     Dosage: BEFORE 13-MAR-2019
  2. ORENCIA [Concomitant]
     Active Substance: ABATACEPT
     Indication: PRODUCT USED FOR UNKNOWN INDICATION
     Dates: start: 201603, end: 201604
  3. BENEPALI [Concomitant]
     Active Substance: ETANERCEPT
     Indication: PRODUCT USED FOR UNKNOWN INDICATION
     Dates: start: 201905, end: 201908
  4. OLUMIANT [Suspect]
     Active Substance: BARICITINIB
     Indication: PRODUCT USED FOR UNKNOWN INDICATION
     Route: 065
     Dates: start: 201805, end: 201808
  5. CIMZIA [Concomitant]
     Active Substance: CERTOLIZUMAB PEGOL
     Indication: PRODUCT USED FOR UNKNOWN INDICATION
     Dates: start: 201311, end: 201406
  6. XELJANZ [Concomitant]
     Active Substance: TOFACITINIB CITRATE
     Indication: PRODUCT USED FOR UNKNOWN INDICATION
     Dates: start: 201904, end: 201905
  7. MABTHERA [Concomitant]
     Active Substance: RITUXIMAB
     Indication: PRODUCT USED FOR UNKNOWN INDICATION
     Dates: start: 201212
  8. HUMIRA [Suspect]
     Active Substance: ADALIMUMAB
     Indication: RHEUMATOID ARTHRITIS
     Route: 058
     Dates: start: 201208, end: 201212
  9. MTX [Concomitant]
     Active Substance: METHOTREXATE SODIUM
     Dosage: BEFORE 02-SEP-2019
  10. MTX [Concomitant]
     Active Substance: METHOTREXATE SODIUM

REACTIONS (4)
  - Pancreatic haemorrhage [Recovered/Resolved]
  - Pancreatic cyst [Recovered/Resolved]
  - Headache [Unknown]
  - Anxiety [Unknown]

NARRATIVE: CASE EVENT DATE: 20190408
